FAERS Safety Report 10068672 (Version 1)
Quarter: 2014Q2

REPORT INFORMATION
  Report Type: Spontaneous
  Country: PL (occurrence: PL)
  Receive Date: 20140409
  Receipt Date: 20140409
  Transmission Date: 20141212
  Serious: Yes (Other)
  Sender: FDA-Public Use
  Company Number: PHHY2014PL041694

PATIENT
  Sex: Female

DRUGS (1)
  1. NILOTINIB [Suspect]

REACTIONS (2)
  - Myelodysplastic syndrome [Unknown]
  - Chromosome banding abnormal [Unknown]
